FAERS Safety Report 15077033 (Version 1)
Quarter: 2018Q2

REPORT INFORMATION
  Report Type: Spontaneous
  Country: US (occurrence: US)
  Receive Date: 20180627
  Receipt Date: 20180627
  Transmission Date: 20180711
  Serious: Yes (Death, Hospitalization, Other)
  Sender: FDA-Public Use
  Company Number: US-NAPPMUNDI-GBR-2018-0056933

PATIENT
  Age: 25 Year
  Sex: Female

DRUGS (1)
  1. HYDROMORPHONE HYDROCHLORIDE. [Suspect]
     Active Substance: HYDROMORPHONE HYDROCHLORIDE
     Indication: ANALGESIC THERAPY
     Route: 042

REACTIONS (18)
  - Pulmonary embolism [Unknown]
  - Tachycardia [Unknown]
  - Product use issue [Unknown]
  - Pain in extremity [Unknown]
  - Tachypnoea [Unknown]
  - Anaemia [Unknown]
  - Respiratory acidosis [Unknown]
  - Drug diversion [Unknown]
  - Cardiac arrest [Fatal]
  - Metabolic acidosis [Unknown]
  - Overdose [Unknown]
  - Drug dependence [Unknown]
  - Foreign body embolism [Unknown]
  - Pulseless electrical activity [Recovered/Resolved]
  - Drug abuse [Fatal]
  - Chest pain [Unknown]
  - Splenic injury [Fatal]
  - Hyperkalaemia [Unknown]
